FAERS Safety Report 12264808 (Version 1)
Quarter: 2016Q2

REPORT INFORMATION
  Report Type: Spontaneous
  Country: US (occurrence: US)
  Receive Date: 20160413
  Receipt Date: 20160413
  Transmission Date: 20160815
  Serious: No
  Sender: FDA-Public Use
  Company Number: US-JNJFOC-20160214134

PATIENT
  Age: 3 Month
  Sex: Male
  Weight: 6.8 kg

DRUGS (1)
  1. CHILDRENS TYLENOL [Suspect]
     Active Substance: ACETAMINOPHEN
     Indication: IRRITABILITY
     Dosage: AS NEEDED
     Route: 048
     Dates: start: 20160214

REACTIONS (5)
  - Product container issue [Unknown]
  - Off label use [Unknown]
  - Product use issue [Unknown]
  - Wrong technique in product usage process [Unknown]
  - Product dropper issue [Unknown]
